FAERS Safety Report 9276542 (Version 1)
Quarter: 2013Q2

REPORT INFORMATION
  Report Type: Other
  Country: US (occurrence: US)
  Receive Date: 20130507
  Receipt Date: 20130507
  Transmission Date: 20140414
  Serious: Yes (Other)
  Sender: FDA-Public Use
  Company Number: US-PURDUE-GBR-2013-0013861

PATIENT
  Age: 19 Year
  Sex: Female

DRUGS (2)
  1. NON-PMN MORPHINE SULFATE [Suspect]
     Indication: INTRACRANIAL PRESSURE INCREASED
     Dosage: 4 MG, UNK
     Route: 042
  2. FENTANYL [Suspect]
     Indication: ANALGESIC THERAPY

REACTIONS (1)
  - Intracranial pressure increased [Recovered/Resolved]
